FAERS Safety Report 5118489-1 (Version None)
Quarter: 2006Q4

REPORT INFORMATION
  Report Type: 
  Country: None (occurrence: None)
  Receive Date: 20061002
  Receipt Date: 20060822
  Transmission Date: 20070319
  Serious: Yes (Death, Other)
  Sender: FDA-Public Use
  Company Number: GB-PURDUE-GBR_2006_0002448

PATIENT
  Age: 58 Year
  Sex: Male

DRUGS (8)
  1. OXYCODONE HCL [Suspect]
     Indication: BREAKTHROUGH PAIN
     Dosage: 140 MG, Q24H
     Route: 058
     Dates: start: 20060701
  2. OXYCODONE HCL [Suspect]
     Route: 058
     Dates: start: 20060701, end: 20060701
  3. OXYCODONE HCL [Suspect]
     Dosage: 5 INJECTIONS OF 40-50 MG
     Route: 058
     Dates: start: 20060701, end: 20060701
  4. MIDAZOLAM HCL [Concomitant]
     Indication: AGITATION
     Dosage: 8 MG, Q24H
     Route: 058
     Dates: start: 20060701
  5. MIDAZOLAM HCL [Concomitant]
     Dosage: 5 MG, SINGLE
     Route: 058
     Dates: start: 20060701, end: 20060701
  6. MIDAZOLAM HCL [Concomitant]
     Dosage: 5 INJECTIONS OF 2.5 - 5 MG
     Route: 058
     Dates: start: 20060701, end: 20060701
  7. CYCLIZINE HYDROCHLORIDE [Concomitant]
     Indication: NAUSEA
     Dosage: 75 MG, Q24H
     Route: 058
     Dates: start: 20060701
  8. DIAMORPHINE [Concomitant]
     Indication: DRUG USE FOR UNKNOWN INDICATION
     Route: 065

REACTIONS (3)
  - AGITATION [None]
  - DEATH [None]
  - PAIN [None]
